FAERS Safety Report 5996707-5 (Version None)
Quarter: 2008Q4

REPORT INFORMATION
  Report Type: 
  Country: None (occurrence: None)
  Receive Date: 20081212
  Receipt Date: 20081023
  Transmission Date: 20090506
  Serious: No
  Sender: FDA-Public Use
  Company Number: US-ABBOTT-08P-163-0483390-00

PATIENT
  Sex: Female

DRUGS (5)
  1. HUMIRA [Suspect]
     Indication: RHEUMATOID ARTHRITIS
     Route: 058
     Dates: start: 20080101
  2. CALCIUM CARBONATE [Concomitant]
     Indication: DRUG USE FOR UNKNOWN INDICATION
     Route: 048
  3. ASCORBIC ACID [Concomitant]
     Indication: VITAMIN SUPPLEMENTATION
     Route: 048
  4. ACETYLSALICYLIC ACID SRT [Concomitant]
     Indication: PAIN MANAGEMENT
     Route: 048
  5. NAPROXEN SODIUM [Concomitant]
     Indication: PAIN MANAGEMENT
     Route: 048

REACTIONS (2)
  - MIDDLE EAR EFFUSION [None]
  - SINUSITIS [None]
